FAERS Safety Report 5345406-1 (Version None)
Quarter: 2007Q2

REPORT INFORMATION
  Report Type: 
  Country: None (occurrence: None)
  Receive Date: 20070605
  Receipt Date: 20070523
  Transmission Date: 20071010
  Serious: Yes (Hospitalization)
  Sender: FDA-Public Use
  Company Number: US-ELI_LILLY_AND_COMPANY-US200704001313

PATIENT
  Age: 83 Year
  Sex: Female
  Weight: 80.272 kg

DRUGS (8)
  1. LIMBITROL [Concomitant]
  2. ASPIRIN [Concomitant]
     Dosage: 81 MG, DAILY (1/D)
  3. LUVOX [Concomitant]
     Dosage: 300 MG, EACH EVENING
  4. MOTRIN [Concomitant]
     Indication: PAIN
     Dosage: 600 MG, 3/D
  5. TOPROL-XL [Concomitant]
     Dosage: 25 MG, DAILY (1/D)
  6. CALCIUM CHLORIDE [Concomitant]
  7. VITAMINS, OTHER COMBINATIONS [Concomitant]
     Dosage: UNK, DAILY (1/D)
  8. FORTEO [Suspect]
     Indication: OSTEOPOROSIS
     Dosage: 20 UG, DAILY (1/D)
     Dates: start: 20050101

REACTIONS (2)
  - FALL [None]
  - TIBIA FRACTURE [None]
